FAERS Safety Report 8441823 (Version 2)
Quarter: 2014Q2

REPORT INFORMATION
  Report Type: Spontaneous
  Country: FR (occurrence: FR)
  Receive Date: 20120305
  Receipt Date: 20140619
  Transmission Date: 20141212
  Serious: Yes (Hospitalization)
  Sender: FDA-Public Use
  Company Number: FR-ASTRAZENECA-2012SE13299

PATIENT
  Age: 1001 Month
  Sex: Male

DRUGS (9)
  1. INEXIUM [Suspect]
     Route: 048
  2. AMLOR [Suspect]
     Route: 048
  3. PREVISCAN [Suspect]
     Route: 048
  4. VASTEN [Suspect]
     Route: 048
  5. COVERSYL [Suspect]
     Route: 048
  6. KARDEGIC [Suspect]
     Route: 048
  7. LASILIX [Suspect]
     Route: 048
  8. ZYLORIC [Suspect]
     Route: 048
  9. XATRAL [Suspect]
     Route: 048

REACTIONS (4)
  - Asthenia [Unknown]
  - Dyspnoea exertional [Unknown]
  - Toxic skin eruption [Unknown]
  - Rash erythematous [Not Recovered/Not Resolved]
